FAERS Safety Report 10474129 (Version 1)
Quarter: 2014Q3

REPORT INFORMATION
  Report Type: Spontaneous
  Country: US (occurrence: US)
  Receive Date: 20140924
  Receipt Date: 20140924
  Transmission Date: 20150326
  Serious: No
  Sender: FDA-Public Use
  Company Number: US-ASTRAZENECA-2013SE71279

PATIENT
  Age: 62 Year
  Sex: Female

DRUGS (2)
  1. LISINOPRIL. [Suspect]
     Active Substance: LISINOPRIL
     Route: 048
     Dates: end: 2011
  2. DIOVAN [Concomitant]
     Active Substance: VALSARTAN

REACTIONS (3)
  - Drug ineffective [Unknown]
  - Adverse reaction [Unknown]
  - Dry mouth [Unknown]

NARRATIVE: CASE EVENT DATE: 2011
